FAERS Safety Report 21884225 (Version 1)
Quarter: 2023Q1

REPORT INFORMATION
  Report Type: Spontaneous
  Country: US (occurrence: US)
  Receive Date: 20230119
  Receipt Date: 20230119
  Transmission Date: 20230418
  Serious: Yes (Other)
  Sender: FDA-Public Use
  Company Number: US-COOPERSURGICAL, INC.-US-2023CPS000102

PATIENT
  Sex: Female

DRUGS (1)
  1. PARAGARD T 380A [Suspect]
     Active Substance: COPPER
     Indication: Product used for unknown indication
     Dosage: UNK
     Route: 015
     Dates: start: 20121114

REACTIONS (17)
  - Injury associated with device [Unknown]
  - Deformity [Unknown]
  - Disability [Unknown]
  - Device breakage [Not Recovered/Not Resolved]
  - Foreign body in reproductive tract [Not Recovered/Not Resolved]
  - Complication of device removal [Not Recovered/Not Resolved]
  - Embedded device [Not Recovered/Not Resolved]
  - Pain [Not Recovered/Not Resolved]
  - Reproductive complication associated with device [Unknown]
  - Impaired quality of life [Unknown]
  - Anxiety [Unknown]
  - Emotional distress [Unknown]
  - Economic problem [Not Recovered/Not Resolved]
  - Anhedonia [Unknown]
  - Apathy [Unknown]
  - Device defective [Unknown]
  - Discomfort [Unknown]

NARRATIVE: CASE EVENT DATE: 20170913
